FAERS Safety Report 6487204-1 (Version None)
Quarter: 2009Q4

REPORT INFORMATION
  Report Type: 
  Country: None (occurrence: None)
  Receive Date: 20091210
  Receipt Date: 20091201
  Transmission Date: 20100525
  Serious: Yes (Hospitalization)
  Sender: FDA-Public Use
  Company Number: US-ALEXION-A200901027

PATIENT
  Sex: Male

DRUGS (6)
  1. SOLIRIS 300MG [Suspect]
     Indication: PAROXYSMAL NOCTURNAL HAEMOGLOBINURIA
     Dosage: 600 MG, QW FOR 4 WEEKS
     Route: 042
     Dates: start: 20070713, end: 20070813
  2. SOLIRIS 300MG [Suspect]
     Dosage: 900 MG,
     Route: 042
     Dates: start: 20070810, end: 20081003
  3. SOLIRIS 300MG [Suspect]
     Dosage: 900 MG,
     Route: 042
     Dates: start: 20081006
  4. SOLIRIS 300MG [Suspect]
     Dosage: UNK
     Route: 042
     Dates: end: 20090101
  5. SOLIRIS 300MG [Suspect]
     Dosage: 600 MG, QW FOR 4 WEEKS
     Dates: start: 20090305, end: 20090323
  6. SOLIRIS 300MG [Suspect]
     Dosage: 900 MG, UNK
     Route: 042

REACTIONS (2)
  - ANAEMIA [None]
  - DEHYDRATION [None]
